FAERS Safety Report 4271378-7 (Version None)
Quarter: 2004Q1

REPORT INFORMATION
  Report Type: 
  Country: None (occurrence: None)
  Receive Date: 20040114
  Receipt Date: 20040114
  Transmission Date: 20041129
  Serious: Yes (Hospitalization)
  Sender: FDA-Public Use
  Company Number: None

PATIENT
  Age: 62 Year
  Sex: Male
  Weight: 136.7 kg

DRUGS (1)
  1. AMIODARONE HCL [Suspect]

REACTIONS (1)
  - HYPERTHYROIDISM [None]
